FAERS Safety Report 6180647-5 (Version None)
Quarter: 2009Q2

REPORT INFORMATION
  Report Type: 
  Country: None (occurrence: None)
  Receive Date: 20090506
  Receipt Date: 20090428
  Transmission Date: 20091009
  Serious: Yes (Hospitalization, Other)
  Sender: FDA-Public Use
  Company Number: US-BAYER-200918829NA

PATIENT
  Sex: Female

DRUGS (2)
  1. BETASERON [Suspect]
     Indication: MULTIPLE SCLEROSIS
     Dates: start: 19940101, end: 19970101
  2. DARVOCET [Concomitant]

REACTIONS (3)
  - INJECTION SITE NECROSIS [None]
  - INJECTION SITE ULCER [None]
  - MULTIPLE SCLEROSIS RELAPSE [None]
